FAERS Safety Report 10597034 (Version 1)
Quarter: 2014Q4

REPORT INFORMATION
  Report Type: Spontaneous
  Country: IN (occurrence: IN)
  Receive Date: 20141121
  Receipt Date: 20141121
  Transmission Date: 20150529
  Serious: Yes (Hospitalization)
  Sender: FDA-Public Use
  Company Number: IN-CIPLA LTD.-2014IN02033

PATIENT
  Age: 11 Month
  Sex: Male

DRUGS (1)
  1. AMLODIPINE [Suspect]
     Active Substance: AMLODIPINE BESYLATE
     Dosage: 15 MG, ONCE

REACTIONS (12)
  - Vomiting [Unknown]
  - Drug dispensing error [Unknown]
  - Cardiac failure congestive [Unknown]
  - Pulmonary oedema [Unknown]
  - Loss of consciousness [Unknown]
  - Anaemia [Unknown]
  - Metabolic acidosis [Unknown]
  - Renal failure [Unknown]
  - Toxicity to various agents [Unknown]
  - Hepatic enzyme increased [Unknown]
  - Respiratory distress [Unknown]
  - Hepatomegaly [Unknown]
